FAERS Safety Report 7112989-0 (Version None)
Quarter: 2010Q4

REPORT INFORMATION
  Report Type: 
  Country: None (occurrence: None)
  Receive Date: 20101119
  Receipt Date: 20101116
  Transmission Date: 20110411
  Serious: Yes (Hospitalization, Other)
  Sender: FDA-Public Use
  Company Number: CA-ROXANE LABORATORIES, INC.-2010-RO-01507RO

PATIENT
  Age: 67 Year
  Sex: Female

DRUGS (13)
  1. CALCIUM CARBONATE [Suspect]
     Indication: HYPOCALCAEMIA
     Dosage: 1500 MG
  2. CALCITRIOL [Suspect]
     Indication: HYPOCALCAEMIA
     Dosage: 0.75 MCG
  3. MILK OF MAGNESIA [Suspect]
     Dosage: 1500 MG
  4. NPH INSULIN [Suspect]
  5. REGULAR INSULIN [Suspect]
  6. LEVOTHYROXINE [Suspect]
     Dosage: 150 MCG
  7. DOMPERIDONE [Suspect]
  8. CLOPIDOGREL [Suspect]
     Dosage: 75 MG
  9. DILTIAZEM [Suspect]
     Dosage: 120 MG
  10. LIPITOR [Suspect]
     Dosage: 40 MG
  11. ERYTHROPOIETIN [Suspect]
  12. ROCALTROL [Suspect]
     Indication: HYPOCALCAEMIA
     Dosage: 0.5 MCG
  13. ONE-ALPHA [Suspect]
     Indication: HYPOCALCAEMIA
     Dosage: 0.5 MCG

REACTIONS (9)
  - ACUTE MYOCARDIAL INFARCTION [None]
  - CEREBRAL CALCIFICATION [None]
  - CHOLELITHIASIS [None]
  - CONVULSION [None]
  - HYPERCALCAEMIA [None]
  - HYPERKALAEMIA [None]
  - HYPOCALCAEMIA [None]
  - HYPOGLYCAEMIA [None]
  - HYPOKALAEMIA [None]
